FAERS Safety Report 21652724 (Version 1)
Quarter: 2022Q4

REPORT INFORMATION
  Report Type: Spontaneous
  Country: FR (occurrence: FR)
  Receive Date: 20221128
  Receipt Date: 20221128
  Transmission Date: 20230112
  Serious: Yes (Hospitalization)
  Sender: FDA-Public Use
  Company Number: FR-SOLVAY-BETA001980016

PATIENT
  Age: 77 Year
  Sex: Male
  Weight: 67 kg

DRUGS (19)
  1. SERC (BETAHISTINE HYDROCHLORIDE) [Suspect]
     Active Substance: BETAHISTINE HYDROCHLORIDE
     Indication: Product used for unknown indication
     Dosage: UNK
     Route: 048
     Dates: end: 19980321
  2. PIRACETAM [Suspect]
     Active Substance: PIRACETAM
     Indication: Angina pectoris
     Dosage: UNK
     Route: 048
  3. BETAHISTINE [Suspect]
     Active Substance: BETAHISTINE
     Indication: Vertigo
     Dosage: UNK
     Route: 048
  4. TAMSULOSIN [Suspect]
     Active Substance: TAMSULOSIN
     Indication: Benign prostatic hyperplasia
     Dosage: UNK
     Route: 048
     Dates: start: 19971115, end: 19980330
  5. TAMSULOSIN [Suspect]
     Active Substance: TAMSULOSIN
     Dosage: UNK
     Route: 048
     Dates: end: 19980321
  6. TAMSULOSIN [Suspect]
     Active Substance: TAMSULOSIN
     Dosage: UNK
     Route: 048
     Dates: end: 19980330
  7. ISOSORBIDE MONONITRATE [Suspect]
     Active Substance: ISOSORBIDE MONONITRATE
     Indication: Essential hypertension
     Dosage: UNK
     Route: 048
  8. RANITIDINE [Suspect]
     Active Substance: RANITIDINE
     Indication: Product used for unknown indication
     Dosage: UNK
     Route: 048
     Dates: start: 19971115, end: 19980321
  9. METHYCLOTHIAZIDE\TRIAMTERENE [Suspect]
     Active Substance: METHYCLOTHIAZIDE\TRIAMTERENE
     Indication: Essential hypertension
     Dosage: DAILY DOSE: 1 DF.
     Route: 048
     Dates: end: 19980330
  10. PIRACETAM [Suspect]
     Active Substance: PIRACETAM
     Indication: Angina pectoris
     Dosage: UNK
     Route: 048
     Dates: end: 19980321
  11. NICORANDIL [Suspect]
     Active Substance: NICORANDIL
     Indication: Angina pectoris
     Dosage: DAILY DOSE: 1 DF.
     Route: 048
     Dates: start: 19971115, end: 19980330
  12. RANITIDINE HYDROCHLORIDE [Suspect]
     Active Substance: RANITIDINE HYDROCHLORIDE
     Indication: Ill-defined disorder
     Dosage: UNK
     Route: 048
     Dates: start: 19971115, end: 19980321
  13. TAMSULOSIN HYDROCHLORIDE [Suspect]
     Active Substance: TAMSULOSIN HYDROCHLORIDE
     Indication: Benign prostatic hyperplasia
     Dosage: DAILY DOSE: 1 DF.
     Route: 048
     Dates: start: 19971115, end: 19980330
  14. MEDROL [Suspect]
     Active Substance: METHYLPREDNISOLONE
     Indication: Ill-defined disorder
     Dosage: UNK
     Route: 065
  15. DUPHALAC [Concomitant]
     Active Substance: LACTULOSE
     Indication: Ill-defined disorder
     Dosage: UNK
     Route: 065
  16. SPAGULAX [Concomitant]
     Active Substance: HERBALS\PLANTAGO OVATA SEED
     Indication: Ill-defined disorder
     Dosage: UNK
     Route: 065
  17. METHYLPREDNISOLONE [Concomitant]
     Active Substance: METHYLPREDNISOLONE
     Indication: Product used for unknown indication
     Dosage: UNK
     Route: 065
  18. HERBALS\PLANTAGO OVATA SEED [Concomitant]
     Active Substance: HERBALS\PLANTAGO OVATA SEED
     Dosage: UNK
     Route: 065
  19. LACTULOSE [Concomitant]
     Active Substance: LACTULOSE
     Indication: Product used for unknown indication
     Dosage: UNK
     Route: 065

REACTIONS (1)
  - Thrombocytopenia [Recovered/Resolved]

NARRATIVE: CASE EVENT DATE: 19980321
